FAERS Safety Report 14271274 (Version 1)
Quarter: 2017Q4

REPORT INFORMATION
  Report Type: Spontaneous
  Country: ES (occurrence: ES)
  Receive Date: 20171211
  Receipt Date: 20171211
  Transmission Date: 20180321
  Serious: Yes (Other)
  Sender: FDA-Public Use
  Company Number: ES-OTSUKA-2016_019884

PATIENT
  Age: 82 Year
  Sex: Male

DRUGS (1)
  1. ABILIFY [Suspect]
     Active Substance: ARIPIPRAZOLE
     Indication: VASCULAR DEMENTIA
     Dosage: 10 MG, BID
     Route: 048
     Dates: start: 20160715, end: 20160716

REACTIONS (4)
  - Depressed level of consciousness [Recovered/Resolved]
  - Product use in unapproved indication [Unknown]
  - Off label use [Unknown]
  - Drug prescribing error [Recovered/Resolved]

NARRATIVE: CASE EVENT DATE: 20160715
